FAERS Safety Report 9705825 (Version 2)
Quarter: 2013Q4

REPORT INFORMATION
  Report Type: Spontaneous
  Country: US (occurrence: US)
  Receive Date: 20131122
  Receipt Date: 20131122
  Transmission Date: 20140711
  Serious: No
  Sender: FDA-Public Use
  Company Number: US-GILEAD-2008-0017892

PATIENT
  Sex: Male
  Weight: 170.1 kg

DRUGS (23)
  1. LETAIRIS [Suspect]
     Indication: PULMONARY ARTERIAL HYPERTENSION
     Route: 048
     Dates: start: 20080818
  2. OXYGEN [Concomitant]
     Dosage: CONTINUOUS
     Route: 055
  3. HUMULIN 70/30 [Concomitant]
     Dosage: AS DIRECTED
     Route: 058
  4. ZOCOR [Concomitant]
     Route: 048
  5. COREG [Concomitant]
     Route: 048
  6. XANAX [Concomitant]
     Dosage: AS DIRECTED
     Route: 048
  7. LASIX [Concomitant]
     Route: 048
  8. LYRICA [Concomitant]
     Route: 048
  9. TRICOR [Concomitant]
     Route: 048
  10. MUPIROCIN OINT [Concomitant]
     Dosage: AS DIRECTED
     Route: 061
  11. METFORMIN [Concomitant]
     Route: 048
  12. ALBUTEROL [Concomitant]
     Route: 055
  13. ZANTAC [Concomitant]
     Route: 048
  14. FLONASE NASAL SP [Concomitant]
     Dosage: AS DIRECTED
     Route: 055
  15. MECLIZINE [Concomitant]
     Route: 048
  16. CYANOCOBALAMIN [Concomitant]
     Route: 058
  17. FLOMAX [Concomitant]
     Route: 048
  18. ASPIRIN [Concomitant]
     Route: 048
  19. MIRALAX POWDER [Concomitant]
     Dosage: AS DIRECTED
     Route: 048
  20. PLAVIX [Concomitant]
     Route: 048
  21. TYLENOL [Concomitant]
     Route: 048
  22. OXYCONTIN [Concomitant]
     Route: 048
  23. VITAMIN E [Concomitant]
     Route: 048

REACTIONS (2)
  - Asthenia [None]
  - Gait disturbance [None]
